FAERS Safety Report 20886323 (Version 1)
Quarter: 2022Q2

REPORT INFORMATION
  Report Type: Spontaneous
  Country: US (occurrence: US)
  Receive Date: 20220527
  Receipt Date: 20220527
  Transmission Date: 20220721
  Serious: Yes (Hospitalization, Disabling)
  Sender: FDA-Public Use
  Company Number: US-ELI_LILLY_AND_COMPANY-US202205008265

PATIENT
  Sex: Male

DRUGS (1)
  1. TRULICITY [Suspect]
     Active Substance: DULAGLUTIDE
     Indication: Type 2 diabetes mellitus
     Dosage: 4.5 MG, UNKNOWN
     Route: 065
     Dates: start: 202104, end: 202112

REACTIONS (4)
  - Diabetic complication [Unknown]
  - Blood glucose increased [Unknown]
  - Diabetes mellitus inadequate control [Unknown]
  - Blood pressure decreased [Unknown]
